FAERS Safety Report 12924079 (Version 2)
Quarter: 2017Q1

REPORT INFORMATION
  Report Type: Spontaneous
  Country: US (occurrence: US)
  Receive Date: 20161108
  Receipt Date: 20170131
  Transmission Date: 20170428
  Serious: Yes (Hospitalization, Other)
  Sender: FDA-Public Use
  Company Number: US-INCYTE CORPORATION-2016IN006901

PATIENT
  Age: 65 Year
  Sex: Male
  Weight: 69.39 kg

DRUGS (12)
  1. ZOFRAN [Concomitant]
     Active Substance: ONDANSETRON HYDROCHLORIDE
     Indication: PRODUCT USED FOR UNKNOWN INDICATION
  2. HYDREA [Suspect]
     Active Substance: HYDROXYUREA
     Dosage: 1 G, QD
     Route: 065
     Dates: start: 201511
  3. JAKAFI [Suspect]
     Active Substance: RUXOLITINIB
     Indication: PRIMARY MYELOFIBROSIS
     Dosage: 20 MG, BID
     Route: 048
     Dates: start: 20130104
  4. MORPHINE [Concomitant]
     Active Substance: MORPHINE
     Indication: PRODUCT USED FOR UNKNOWN INDICATION
  5. PEG 3350 [Concomitant]
     Active Substance: POLYETHYLENE GLYCOL 3350
     Indication: PRODUCT USED FOR UNKNOWN INDICATION
  6. HYDREA [Suspect]
     Active Substance: HYDROXYUREA
     Indication: PRODUCT USED FOR UNKNOWN INDICATION
     Dosage: 500 MG, QD
     Route: 065
  7. JAKAFI [Suspect]
     Active Substance: RUXOLITINIB
     Dosage: 20 MG, BID
     Route: 048
     Dates: start: 20160513, end: 2016
  8. JAKAFI [Suspect]
     Active Substance: RUXOLITINIB
     Dosage: 20 MG, BID
     Route: 048
     Dates: start: 201610, end: 20161028
  9. COLACE [Concomitant]
     Active Substance: DOCUSATE SODIUM
     Indication: PRODUCT USED FOR UNKNOWN INDICATION
  10. FLEXERIL [Concomitant]
     Active Substance: CYCLOBENZAPRINE HYDROCHLORIDE
     Indication: PRODUCT USED FOR UNKNOWN INDICATION
  11. SENNA S [Concomitant]
     Active Substance: DOCUSATE SODIUM\SENNA LEAF
     Indication: PRODUCT USED FOR UNKNOWN INDICATION
  12. HYDREA [Suspect]
     Active Substance: HYDROXYUREA
     Dosage: 1 G, BID
     Route: 065
     Dates: start: 201607

REACTIONS (16)
  - Oxygen consumption increased [Unknown]
  - Pain [Unknown]
  - Tachycardia [Unknown]
  - Colitis [Unknown]
  - Liver palpable [Unknown]
  - Dyspnoea [Unknown]
  - Pneumonia [Unknown]
  - Chills [Unknown]
  - Tachypnoea [Unknown]
  - Leukocytosis [Unknown]
  - Respiratory distress [Unknown]
  - Abdominal distension [Unknown]
  - Treatment noncompliance [Unknown]
  - Anaemia [Unknown]
  - Fatigue [Unknown]
  - Disseminated tuberculosis [Unknown]

NARRATIVE: CASE EVENT DATE: 2015
